FAERS Safety Report 6305496-6 (Version None)
Quarter: 2009Q3

REPORT INFORMATION
  Report Type: 
  Country: None (occurrence: None)
  Receive Date: 20090807
  Receipt Date: 20090726
  Transmission Date: 20100115
  Serious: Yes (Death, Hospitalization)
  Sender: FDA-Public Use
  Company Number: CERZ-10145

PATIENT
  Age: 33 Month
  Sex: Male
  Weight: 12 kg

DRUGS (14)
  1. CEREZYME [Suspect]
     Indication: GAUCHER'S DISEASE
     Dosage: 60 U/KG, Q2W, INTRAVENOUS ; 75 U/KG, Q2W, INTRAVENOUS ; 120 U/KG, Q2W, INTRAVENOUS
     Route: 042
     Dates: start: 20001226, end: 20010405
  2. CEREZYME [Suspect]
     Indication: GAUCHER'S DISEASE
     Dosage: 60 U/KG, Q2W, INTRAVENOUS ; 75 U/KG, Q2W, INTRAVENOUS ; 120 U/KG, Q2W, INTRAVENOUS
     Route: 042
     Dates: end: 20020627
  3. CEREZYME [Suspect]
     Indication: GAUCHER'S DISEASE
     Dosage: 60 U/KG, Q2W, INTRAVENOUS ; 75 U/KG, Q2W, INTRAVENOUS ; 120 U/KG, Q2W, INTRAVENOUS
     Route: 042
     Dates: start: 20010419
  4. ASTOMIN (DIMEMORFAN PHOSPHATE) [Concomitant]
  5. PERIACTIN [Concomitant]
  6. PROCATEROL HCL [Concomitant]
  7. MUCODYNE (CARBOCISTEINE) [Concomitant]
  8. THEOPHYLLINE [Concomitant]
  9. DIFLUCAN [Concomitant]
  10. BANAN [Concomitant]
  11. AZITHROMYCIN [Concomitant]
  12. ZADITEN [Concomitant]
  13. CEFCAPENE PIVOXIL (CEFCAPENE PIVOXIL) [Concomitant]
  14. PHENOBARBITAL TAB [Concomitant]

REACTIONS (9)
  - CONVULSION [None]
  - IIIRD NERVE DISORDER [None]
  - NEUROLOGICAL DECOMPENSATION [None]
  - OEDEMA [None]
  - PNEUMONIA [None]
  - RESPIRATORY FAILURE [None]
  - TEMPERATURE REGULATION DISORDER [None]
  - THROMBOCYTOPENIA [None]
  - URINE OUTPUT DECREASED [None]
